FAERS Safety Report 9069732 (Version 1)
Quarter: 2013Q1

REPORT INFORMATION
  Report Type: Spontaneous
  Country: US (occurrence: US)
  Receive Date: 20130215
  Receipt Date: 20130215
  Transmission Date: 20140127
  Serious: Yes (Other)
  Sender: FDA-Public Use
  Company Number: US-ELI_LILLY_AND_COMPANY-US201302002616

PATIENT
  Age: 72 Year
  Sex: Female

DRUGS (6)
  1. EVISTA [Suspect]
     Indication: OSTEOPOROSIS
     Dosage: 60 MG, QD
     Route: 065
  2. EVISTA [Suspect]
     Dosage: 60 MG, QD
     Route: 065
     Dates: start: 201102
  3. SYNTHROID [Concomitant]
     Indication: THYROID DISORDER
     Dosage: UNK, UNKNOWN
     Route: 065
  4. FOSAMAX [Concomitant]
     Dosage: UNK, UNKNOWN
     Route: 065
  5. RELAFEN [Concomitant]
     Indication: ARTHRITIS
     Dosage: UNK, UNKNOWN
     Route: 065
  6. QUESTRAN [Concomitant]
     Dosage: UNK, UNKNOWN
     Route: 065

REACTIONS (2)
  - Breast cancer [Unknown]
  - Hot flush [Unknown]
